FAERS Safety Report 22340135 (Version 1)
Quarter: 2023Q2

REPORT INFORMATION
  Report Type: Spontaneous
  Country: FI (occurrence: FI)
  Receive Date: 20230518
  Receipt Date: 20230518
  Transmission Date: 20230721
  Serious: Yes (Life-Threatening)
  Sender: FDA-Public Use
  Company Number: FI-NALPROPION PHARMACEUTICALS INC.-FI-2023CUR001935

PATIENT
  Age: 25 Year
  Sex: Female

DRUGS (1)
  1. BUPROPION HYDROCHLORIDE\NALTREXONE HYDROCHLORIDE [Suspect]
     Active Substance: BUPROPION HYDROCHLORIDE\NALTREXONE HYDROCHLORIDE
     Indication: Obesity
     Dosage: STRENGTH 8/90 MG, 4,DF,DAILY
     Route: 048
     Dates: start: 20230315, end: 20230405

REACTIONS (3)
  - Lip pruritus [Recovered/Resolved]
  - Sensation of foreign body [Recovered/Resolved]
  - Lip oedema [Recovered/Resolved]

NARRATIVE: CASE EVENT DATE: 20230403
